FAERS Safety Report 20979310 (Version 17)
Quarter: 2023Q1

REPORT INFORMATION
  Report Type: Report from Study
  Country: CL (occurrence: CL)
  Receive Date: 20220620
  Receipt Date: 20230118
  Transmission Date: 20230418
  Serious: Yes (Hospitalization, Other)
  Sender: FDA-Public Use
  Company Number: CL-NOVARTISPH-NVSC2022CL137215

PATIENT
  Age: 66 Year
  Sex: Female
  Weight: 76 kg

DRUGS (14)
  1. LETROZOLE [Suspect]
     Active Substance: LETROZOLE
     Indication: Breast cancer metastatic
     Dosage: UNK
     Route: 065
  2. FULVESTRANT [Suspect]
     Active Substance: FULVESTRANT
     Indication: Breast cancer
     Dosage: UNK UNK, Q2W
     Route: 030
     Dates: start: 20220624
  3. PIQRAY [Suspect]
     Active Substance: ALPELISIB
     Indication: Breast cancer
     Dosage: 300 MG, QD (VIA MOUTH, ONCE A DAY)
     Route: 048
     Dates: start: 20220723
  4. PIQRAY [Suspect]
     Active Substance: ALPELISIB
     Dosage: 300 MG, QD
     Route: 048
     Dates: start: 20220723
  5. PIQRAY [Suspect]
     Active Substance: ALPELISIB
     Dosage: 150 MG, QD
     Route: 048
     Dates: start: 20220723
  6. PIQRAY [Suspect]
     Active Substance: ALPELISIB
     Dosage: UNK
     Route: 048
     Dates: start: 20220827
  7. PIQRAY [Suspect]
     Active Substance: ALPELISIB
     Dosage: 150 MG, QD (VIA MOUTH)
     Route: 048
  8. CAPECITABINE [Suspect]
     Active Substance: CAPECITABINE
     Indication: Breast cancer metastatic
     Dosage: 6 DOSAGE FORM, CYCLIC
     Route: 065
     Dates: start: 201404, end: 201408
  9. PACLITAXEL [Suspect]
     Active Substance: PACLITAXEL
     Indication: Neuropathy peripheral
     Dosage: UNK
     Route: 065
  10. PACLITAXEL [Suspect]
     Active Substance: PACLITAXEL
     Indication: Breast cancer metastatic
  11. EXEMESTANE [Concomitant]
     Active Substance: EXEMESTANE
     Indication: Product used for unknown indication
     Dosage: UNK
     Route: 065
     Dates: start: 201410
  12. DOCETAXEL [Concomitant]
     Active Substance: DOCETAXEL
     Indication: Product used for unknown indication
     Dosage: UNK
     Route: 065
  13. TAMOXIFEN [Concomitant]
     Active Substance: TAMOXIFEN
     Indication: Product used for unknown indication
     Dosage: UNK
     Route: 065
  14. FASLODEX [Concomitant]
     Active Substance: FULVESTRANT
     Indication: Product used for unknown indication
     Dosage: UNK (PREVIOUS THURSDAY)
     Route: 065

REACTIONS (35)
  - Spinal cord oedema [Unknown]
  - Paralysis [Unknown]
  - Infection [Unknown]
  - Vertebral foraminal stenosis [Unknown]
  - Spinal deformity [Unknown]
  - Breast cancer [Unknown]
  - Metastases to spine [Unknown]
  - Back pain [Unknown]
  - Neoplasm [Unknown]
  - Swelling [Unknown]
  - Flatulence [Unknown]
  - Aphthous ulcer [Unknown]
  - Pharyngeal ulceration [Recovering/Resolving]
  - Blood glucose abnormal [Unknown]
  - Pain [Recovering/Resolving]
  - Discomfort [Recovering/Resolving]
  - Malaise [Recovering/Resolving]
  - Dysphagia [Unknown]
  - Feeding disorder [Recovering/Resolving]
  - Feeling abnormal [Unknown]
  - Inflammation [Unknown]
  - Mucosal inflammation [Recovering/Resolving]
  - Eating disorder [Unknown]
  - Depressed mood [Recovering/Resolving]
  - Drug resistance [Unknown]
  - Memory impairment [Unknown]
  - Nervousness [Unknown]
  - Hypoaesthesia [Unknown]
  - Stomatitis [Recovering/Resolving]
  - Dyspepsia [Recovered/Resolved]
  - Dyspepsia [Unknown]
  - Abdominal pain upper [Unknown]
  - Dysgeusia [Unknown]
  - Diarrhoea [Unknown]
  - Inappropriate schedule of product administration [Unknown]

NARRATIVE: CASE EVENT DATE: 20141001
